FAERS Safety Report 4987285-8 (Version None)
Quarter: 2006Q2

REPORT INFORMATION
  Report Type: 
  Country: None (occurrence: None)
  Receive Date: 20060501
  Receipt Date: 20051214
  Transmission Date: 20061013
  Serious: Yes (Death, Hospitalization)
  Sender: FDA-Public Use
  Company Number: US-MERCK-0512USA02253

PATIENT
  Age: 47 Year
  Sex: Male
  Weight: 70 kg

DRUGS (2)
  1. VIOXX [Suspect]
     Indication: RHEUMATOID ARTHRITIS
     Route: 048
     Dates: start: 20010601, end: 20021121
  2. TYLENOL (CAPLET) [Concomitant]
     Route: 065

REACTIONS (4)
  - CARDIOGENIC SHOCK [None]
  - DEEP VEIN THROMBOSIS [None]
  - HYPOTENSION [None]
  - MYOCARDIAL INFARCTION [None]
